FAERS Safety Report 9325188 (Version 3)
Quarter: 2013Q3

REPORT INFORMATION
  Report Type: Spontaneous
  Country: US (occurrence: US)
  Receive Date: 20130604
  Receipt Date: 20130821
  Transmission Date: 20140515
  Serious: Yes (Hospitalization, Disabling, Other)
  Sender: FDA-Public Use
  Company Number: US-009507513-2009SP040696

PATIENT
  Sex: Female
  Weight: 65.77 kg

DRUGS (3)
  1. NUVARING [Suspect]
     Indication: CONTRACEPTION
     Dosage: UNK
     Route: 067
     Dates: start: 200701, end: 200712
  2. SOMATROPIN [Concomitant]
     Indication: PRODUCT USED FOR UNKNOWN INDICATION
  3. PHENERGAN (PROMETHAZINE HYDROCHLORIDE) [Concomitant]
     Indication: PRODUCT USED FOR UNKNOWN INDICATION

REACTIONS (15)
  - Grand mal convulsion [Unknown]
  - Gastritis [Unknown]
  - Hypotension [Unknown]
  - Hypokalaemia [Unknown]
  - Leukocytosis [Unknown]
  - Pulmonary embolism [Unknown]
  - Superior sagittal sinus thrombosis [Unknown]
  - Cerebral infarction [Unknown]
  - Headache [Unknown]
  - Depression [Unknown]
  - Migraine [Unknown]
  - Gastritis erosive [Unknown]
  - Coagulopathy [Unknown]
  - Venous thrombosis limb [Unknown]
  - Cardiac failure congestive [Unknown]
